FAERS Safety Report 7512738-8 (Version None)
Quarter: 2011Q2

REPORT INFORMATION
  Report Type: 
  Country: None (occurrence: None)
  Receive Date: 20110531
  Receipt Date: 20110517
  Transmission Date: 20111010
  Serious: Yes (Hospitalization)
  Sender: FDA-Public Use
  Company Number: A0785149A

PATIENT
  Age: 52 Year
  Sex: Female
  Weight: 62.3 kg

DRUGS (1)
  1. AVANDIA [Suspect]
     Indication: DIABETES MELLITUS
     Dosage: 4MG TWICE PER DAY
     Route: 048
     Dates: start: 20030101, end: 20070101

REACTIONS (12)
  - PULMONARY OEDEMA [None]
  - RENAL FAILURE [None]
  - ACUTE PULMONARY OEDEMA [None]
  - CARDIOMYOPATHY [None]
  - CARDIO-RESPIRATORY ARREST [None]
  - MYOCARDIAL ISCHAEMIA [None]
  - MYOCARDIAL INFARCTION [None]
  - CORONARY ARTERY DISEASE [None]
  - CARDIAC DISORDER [None]
  - CARDIAC FAILURE CONGESTIVE [None]
  - PLEURAL EFFUSION [None]
  - IMPLANTABLE DEFIBRILLATOR INSERTION [None]
